FAERS Safety Report 6264225-5 (Version None)
Quarter: 2009Q3

REPORT INFORMATION
  Report Type: 
  Country: None (occurrence: None)
  Receive Date: 20090706
  Receipt Date: 20090128
  Transmission Date: 20100115
  Serious: Yes (Death)
  Sender: FDA-Public Use
  Company Number: 2009020015

PATIENT
  Age: 39 Year
  Sex: Female

DRUGS (2)
  1. SOMA [Suspect]
     Indication: BACK PAIN
     Dosage: ORAL
     Route: 048
     Dates: start: 20050101, end: 20081201
  2. VALIUM [Concomitant]

REACTIONS (1)
  - OVERDOSE [None]
